FAERS Safety Report 18747291 (Version 3)
Quarter: 2021Q3

REPORT INFORMATION
  Report Type: Report from Study
  Country: US (occurrence: US)
  Receive Date: 20210115
  Receipt Date: 20210830
  Transmission Date: 20211014
  Serious: Yes (Death, Hospitalization, Other)
  Sender: FDA-Public Use
  Company Number: US-TAKEDA-2021TUS001129

PATIENT
  Age: 71 Year
  Sex: Male

DRUGS (4)
  1. TEDUGLUTIDE [Suspect]
     Active Substance: TEDUGLUTIDE
     Indication: SHORT-BOWEL SYNDROME
     Dosage: 0.29 INTERNATIONAL UNIT, QD
     Route: 058
     Dates: start: 20201208
  2. TEDUGLUTIDE [Suspect]
     Active Substance: TEDUGLUTIDE
     Indication: SHORT-BOWEL SYNDROME
     Dosage: 0.29 INTERNATIONAL UNIT, QD
     Route: 058
     Dates: start: 20201208
  3. TEDUGLUTIDE [Suspect]
     Active Substance: TEDUGLUTIDE
     Indication: SHORT-BOWEL SYNDROME
     Dosage: 0.29 INTERNATIONAL UNIT, QD
     Route: 058
     Dates: start: 20201208
  4. TEDUGLUTIDE [Suspect]
     Active Substance: TEDUGLUTIDE
     Indication: SHORT-BOWEL SYNDROME
     Dosage: 0.29 INTERNATIONAL UNIT, QD
     Route: 058
     Dates: start: 20201208

REACTIONS (3)
  - Weight increased [Unknown]
  - Cerebrovascular accident [Fatal]
  - Hospitalisation [Unknown]

NARRATIVE: CASE EVENT DATE: 20201208
